FAERS Safety Report 8321548 (Version 3)
Quarter: 2013Q4

REPORT INFORMATION
  Report Type: Spontaneous
  Country: JP (occurrence: JP)
  Receive Date: 20120104
  Receipt Date: 20131231
  Transmission Date: 20140711
  Serious: Yes (Other)
  Sender: FDA-Public Use
  Company Number: JP-ROCHE-1025857

PATIENT
  Age: 75 Year
  Sex: Male

DRUGS (3)
  1. CEFTRIAXONE [Suspect]
     Indication: BRONCHITIS
     Route: 041
  2. CEFTRIAXONE [Suspect]
     Indication: PNEUMONIA
     Route: 041
  3. CEFTRIAXONE [Suspect]
     Indication: PLEURISY
     Route: 041

REACTIONS (2)
  - Cholangitis acute [Recovered/Resolved]
  - Bile duct stone [Recovered/Resolved]
